FAERS Safety Report 13328277 (Version 1)
Quarter: 2017Q1

REPORT INFORMATION
  Report Type: Spontaneous
  Country: US (occurrence: US)
  Receive Date: 20170310
  Receipt Date: 20170310
  Transmission Date: 20170428
  Serious: Yes (Hospitalization)
  Sender: FDA-Public Use
  Company Number: None

PATIENT
  Age: 58 Year
  Sex: Male
  Weight: 60.3 kg

DRUGS (1)
  1. BACTRIM [Suspect]
     Active Substance: SULFAMETHOXAZOLE\TRIMETHOPRIM
     Indication: STEVENS-JOHNSON SYNDROME
     Route: 048

REACTIONS (5)
  - Drug hypersensitivity [None]
  - Condition aggravated [None]
  - Rash [None]
  - Stevens-Johnson syndrome [None]
  - Erythema multiforme [None]

NARRATIVE: CASE EVENT DATE: 20170119
